FAERS Safety Report 8011133-5 (Version None)
Quarter: 2011Q4

REPORT INFORMATION
  Report Type: 
  Country: None (occurrence: None)
  Receive Date: 20111228
  Receipt Date: 20111219
  Transmission Date: 20120403
  Serious: No
  Sender: FDA-Public Use
  Company Number: US-NOVOPROD-335773

PATIENT

DRUGS (8)
  1. LIRAGLUTIDE FLEXPEN [Suspect]
     Dosage: 1.2 MG, QD
     Route: 058
     Dates: start: 20110728
  2. LANTUS [Concomitant]
  3. OLANZAPINE [Concomitant]
  4. LIRAGLUTIDE FLEXPEN [Suspect]
     Dosage: 1.2 MG, QD
     Route: 058
     Dates: start: 20110712
  5. LIRAGLUTIDE FLEXPEN [Suspect]
     Dosage: 1.8 MG, QD
     Route: 058
     Dates: start: 20110721
  6. LIRAGLUTIDE FLEXPEN [Suspect]
     Indication: TYPE 2 DIABETES MELLITUS
     Dosage: 0.6 MG, QD
     Route: 058
     Dates: start: 20110621
  7. LIRAGLUTIDE FLEXPEN [Suspect]
     Dosage: 0.6 MG, QD
     Route: 058
     Dates: start: 20110817, end: 20110919
  8. QUETIAPINE [Concomitant]

REACTIONS (5)
  - NAUSEA [None]
  - ABDOMINAL PAIN UPPER [None]
  - FAMILY STRESS [None]
  - LIPASE INCREASED [None]
  - BLOOD AMYLASE DECREASED [None]
